FAERS Safety Report 5793640-9 (Version None)
Quarter: 2008Q2

REPORT INFORMATION
  Report Type: 
  Country: None (occurrence: None)
  Receive Date: 20080627
  Receipt Date: 20080624
  Transmission Date: 20081010
  Serious: Yes (Other)
  Sender: FDA-Public Use
  Company Number: DE-BRISTOL-MYERS SQUIBB COMPANY-14240048

PATIENT
  Age: 33 Year
  Sex: Male
  Weight: 78 kg

DRUGS (1)
  1. ABILIFY [Suspect]
     Dosage: 35 TABLETS, TOTAL 525 MG
     Route: 048

REACTIONS (3)
  - DIARRHOEA [None]
  - DRUG ABUSE [None]
  - FATIGUE [None]
